FAERS Safety Report 8551722-2 (Version None)
Quarter: 2012Q3

REPORT INFORMATION
  Report Type: 
  Country: None (occurrence: None)
  Receive Date: 20120730
  Receipt Date: 20120727
  Transmission Date: 20120928
  Serious: Yes (Other)
  Sender: FDA-Public Use
  Company Number: US-COVIDIEN/TYCO HEALTHCARE/MALLINCKRODT-T201202887

PATIENT
  Age: 40 Year
  Sex: Female

DRUGS (2)
  1. EXALGO [Suspect]
     Indication: BACK PAIN
     Dosage: 8 MG, QD
     Dates: start: 20111107, end: 20111108
  2. MORPHINE [Concomitant]
     Indication: BACK PAIN
     Dosage: 15 MG, Q 12 HOURS
     Dates: end: 20121107

REACTIONS (1)
  - ASTHMA [None]
